FAERS Safety Report 10706361 (Version 1)
Quarter: 2015Q1

REPORT INFORMATION
  Report Type: Spontaneous
  Country: US (occurrence: None)
  Receive Date: 20150109
  Receipt Date: 20150109
  Transmission Date: 20150721
  Serious: No
  Sender: FDA-Public Use
  Company Number: None

PATIENT
  Age: 78 Year
  Sex: Male
  Weight: 74.84 kg

DRUGS (1)
  1. PRAZOSIN HCL [Suspect]
     Active Substance: PRAZOSIN HYDROCHLORIDE
     Indication: HYPERTENSION
     Dates: start: 201408, end: 201412

REACTIONS (4)
  - Pruritus generalised [None]
  - Dyspnoea [None]
  - Peripheral swelling [None]
  - Nightmare [None]

NARRATIVE: CASE EVENT DATE: 20141030
